FAERS Safety Report 10866542 (Version 1)
Quarter: 2015Q1

REPORT INFORMATION
  Report Type: Spontaneous
  Country: US (occurrence: None)
  Receive Date: 20150220
  Receipt Date: 20150220
  Transmission Date: 20150721
  Serious: Yes (Hospitalization)
  Sender: FDA-Public Use
  Company Number: None

PATIENT
  Age: 80 Year
  Sex: Male
  Weight: 91.4 kg

DRUGS (17)
  1. GUAIFENESIN. [Concomitant]
     Active Substance: GUAIFENESIN
  2. ASPIRIN. [Concomitant]
     Active Substance: ASPIRIN
  3. LACTULOSE (ENULOSE) [Concomitant]
  4. TIOTROPIUM BROMIDE (SPIRIVA WITH HANDIHALER) [Concomitant]
  5. BEVACIZUMAB (RHUMAB VEGF) [Suspect]
     Active Substance: BEVACIZUMAB
     Dates: end: 20120907
  6. CARBOPLATIN. [Suspect]
     Active Substance: CARBOPLATIN
     Dates: end: 20120907
  7. HYDROCODONE-ACETAMINOPHEN (NORCO) [Concomitant]
  8. MOMETASONE FUROATE (ASMANEX TWISTHALER INHL) [Concomitant]
  9. POLYETHYLENE GLYCOL (MIRALAX) [Concomitant]
  10. PROCHLORPERAZINE (COMPAZINE) [Concomitant]
  11. OXYCODONE (ROXICODONE) [Concomitant]
  12. SIMVASTATIN. [Concomitant]
     Active Substance: SIMVASTATIN
  13. ONDANSETRON (ZOFRAN) [Concomitant]
  14. DEXAMETHASONE (DECADRON) [Concomitant]
  15. OXYCODONE (OXYCONTIN) [Concomitant]
  16. FLOMAX [Concomitant]
     Active Substance: TAMSULOSIN HYDROCHLORIDE
  17. TAXOL [Suspect]
     Active Substance: PACLITAXEL
     Dates: end: 20120907

REACTIONS (9)
  - Abdominal pain [None]
  - Dyspnoea [None]
  - Oxygen saturation decreased [None]
  - Abdominal distension [None]
  - Schwannoma [None]
  - Tremor [None]
  - Lethargy [None]
  - Confusional state [None]
  - Decreased appetite [None]

NARRATIVE: CASE EVENT DATE: 20120909
